FAERS Safety Report 4298939-3 (Version None)
Quarter: 2004Q1

REPORT INFORMATION
  Report Type: 
  Country: None (occurrence: None)
  Receive Date: 20040217
  Receipt Date: 20040209
  Transmission Date: 20041129
  Serious: Yes (Hospitalization)
  Sender: FDA-Public Use
  Company Number: 23004

PATIENT
  Age: 22 Year
  Sex: Female

DRUGS (1)
  1. NORFLEX [Suspect]
     Dosage: 10 TABLETS ONCE (ONCE) ORAL
     Route: 048
     Dates: start: 20030831, end: 20030831

REACTIONS (7)
  - AGITATION [None]
  - ANXIETY [None]
  - ELECTROCARDIOGRAM ST-T CHANGE [None]
  - HALLUCINATION [None]
  - OVERDOSE [None]
  - SINUS TACHYCARDIA [None]
  - TACHYCARDIA [None]
